FAERS Safety Report 14367445 (Version 1)
Quarter: 2018Q1

REPORT INFORMATION
  Report Type: Spontaneous
  Country: US (occurrence: US)
  Receive Date: 20180105
  Receipt Date: 20180105
  Transmission Date: 20180509
  Serious: No
  Sender: FDA-Public Use
  Company Number: None

PATIENT
  Age: 27 Year
  Sex: Female
  Weight: 83.25 kg

DRUGS (8)
  1. LEVOTHYROXINE. [Concomitant]
     Active Substance: LEVOTHYROXINE
  2. CLOMID [Concomitant]
     Active Substance: CLOMIPHENE CITRATE
  3. GLUCOSAMINE [Concomitant]
     Active Substance: GLUCOSAMINE
  4. CITALOPRAM [Concomitant]
     Active Substance: CITALOPRAM HYDROBROMIDE
  5. PRENATAL VITAMINS [Concomitant]
     Active Substance: VITAMINS
  6. C-PROGESTERONE VAGINAL SUPPOSITORIES [Suspect]
     Active Substance: PROGESTERONE
     Indication: PREGNANCY
     Dosage: ?          QUANTITY:1 SUPPOSITORY(IES);?
     Route: 067
  7. ACIDOPHILUS [Concomitant]
     Active Substance: LACTOBACILLUS ACIDOPHILUS
  8. TYLENOL [Concomitant]
     Active Substance: ACETAMINOPHEN

REACTIONS (4)
  - Dizziness [None]
  - Nausea [None]
  - Hot flush [None]
  - Headache [None]

NARRATIVE: CASE EVENT DATE: 20180104
